FAERS Safety Report 16170223 (Version 1)
Quarter: 2019Q2

REPORT INFORMATION
  Report Type: Spontaneous
  Country: US (occurrence: US)
  Receive Date: 20190408
  Receipt Date: 20190408
  Transmission Date: 20190711
  Serious: Yes (Other)
  Sender: FDA-Public Use
  Company Number: US-BAYER-2019-066946

PATIENT
  Age: 53 Year
  Sex: Female

DRUGS (1)
  1. BETASERON [Suspect]
     Active Substance: INTERFERON BETA-1B
     Indication: MULTIPLE SCLEROSIS
     Dosage: 0.25 MG
     Dates: start: 2003

REACTIONS (7)
  - Multiple sclerosis relapse [None]
  - Neuropathy peripheral [None]
  - Nausea [None]
  - Weight decreased [None]
  - Metabolic surgery [None]
  - Vomiting [None]
  - Dysstasia [None]

NARRATIVE: CASE EVENT DATE: 201812
